FAERS Safety Report 20053032 (Version 3)
Quarter: 2021Q4

REPORT INFORMATION
  Report Type: Report from Study
  Country: GB (occurrence: GB)
  Receive Date: 20211110
  Receipt Date: 20211206
  Transmission Date: 20220303
  Serious: Yes (Death, Hospitalization)
  Sender: FDA-Public Use
  Company Number: GB-CELGENE-GBR-20210904649

PATIENT
  Age: 51 Year
  Sex: Male
  Weight: 68.7 kg

DRUGS (29)
  1. ABRAXANE [Suspect]
     Active Substance: PACLITAXEL
     Indication: Pancreatic carcinoma
     Dosage: 230MG
     Route: 041
     Dates: start: 20210728, end: 20210909
  2. GEMCITABINE [Suspect]
     Active Substance: GEMCITABINE
     Indication: Pancreatic carcinoma
     Dosage: 1862MG
     Route: 041
     Dates: start: 20210728, end: 20210909
  3. HALOPERIDOL [Concomitant]
     Active Substance: HALOPERIDOL
     Indication: Pain
     Dosage: 1MG
     Route: 058
     Dates: start: 20210804
  4. KETAMINE [Concomitant]
     Active Substance: KETAMINE
     Indication: Pain
     Dosage: 100MG
     Route: 058
     Dates: start: 20210806
  5. AZOCIN [Concomitant]
     Indication: Infection
     Dosage: 4.5G
     Route: 041
     Dates: start: 20210905
  6. AMOXICILLIN\CLAVULANATE POTASSIUM [Concomitant]
     Active Substance: AMOXICILLIN\CLAVULANATE POTASSIUM
     Indication: Infection
     Dosage: 1.2G
     Route: 041
     Dates: start: 20210916, end: 20210916
  7. ACETAMINOPHEN [Concomitant]
     Active Substance: ACETAMINOPHEN
     Indication: Pyrexia
     Dosage: 1G
     Route: 048
     Dates: start: 20210916, end: 20210923
  8. LANSOPRAZOLE [Concomitant]
     Active Substance: LANSOPRAZOLE
     Indication: Gastric transposition
     Dosage: 30MG
     Route: 048
     Dates: start: 20210907
  9. LANSOPRAZOLE [Concomitant]
     Active Substance: LANSOPRAZOLE
     Route: 048
     Dates: start: 20210915, end: 20210923
  10. PREGALIN [Concomitant]
     Indication: Pain
     Dosage: 100MG
     Route: 048
     Dates: start: 20210803
  11. PREGALIN [Concomitant]
     Route: 048
     Dates: start: 20210915, end: 20210923
  12. CLONAZEPAM [Concomitant]
     Active Substance: CLONAZEPAM
     Indication: Sedation
     Dosage: 500MG
     Route: 048
     Dates: start: 20210915, end: 20210922
  13. CLONAZEPAM [Concomitant]
     Active Substance: CLONAZEPAM
     Indication: Panic attack
  14. DOXYCYCLINE [Concomitant]
     Active Substance: DOXYCYCLINE
     Indication: Infection
     Route: 048
     Dates: start: 20210915, end: 20210916
  15. DOXYCYCLINE [Concomitant]
     Active Substance: DOXYCYCLINE
     Indication: Antibiotic therapy
     Dosage: 100MG
     Route: 048
     Dates: start: 20210918
  16. APIXABAN [Concomitant]
     Active Substance: APIXABAN
     Indication: Deep vein thrombosis
     Dosage: 10MG
     Route: 058
     Dates: start: 20210723
  17. APIXABAN [Concomitant]
     Active Substance: APIXABAN
     Indication: Thrombosis
     Route: 048
     Dates: start: 20210915, end: 20210924
  18. APIXABAN [Concomitant]
     Active Substance: APIXABAN
     Dosage: 10 MILLIGRAM
     Route: 048
     Dates: start: 20210727
  19. DEXAMETHASONE [Concomitant]
     Active Substance: DEXAMETHASONE
     Indication: Steroid therapy
     Dosage: 2MG
     Route: 048
     Dates: start: 20210916, end: 20210920
  20. FENTANYL [Concomitant]
     Active Substance: FENTANYL
     Indication: Pain
     Dosage: 11MG
     Route: 058
     Dates: start: 20210804
  21. PREDNISOLONE [Concomitant]
     Active Substance: PREDNISOLONE
     Indication: Steroid therapy
     Route: 048
     Dates: start: 20210915, end: 20210924
  22. PREDNISOLONE [Concomitant]
     Active Substance: PREDNISOLONE
     Indication: Antibiotic therapy
     Dosage: 100MG
     Route: 048
     Dates: start: 20210918
  23. PIPERACILLIN SODIUM\TAZOBACTAM SODIUM [Concomitant]
     Active Substance: PIPERACILLIN SODIUM\TAZOBACTAM SODIUM
     Indication: Infection
     Route: 041
     Dates: start: 20210915, end: 20210915
  24. PIPERACILLIN SODIUM\TAZOBACTAM SODIUM [Concomitant]
     Active Substance: PIPERACILLIN SODIUM\TAZOBACTAM SODIUM
     Indication: Antibiotic therapy
     Dosage: 100MG
     Route: 048
     Dates: start: 20210918
  25. COTRIMOXAZOLE [Concomitant]
     Active Substance: SULFAMETHOXAZOLE\TRIMETHOPRIM
     Indication: Infection
     Dosage: 1.2G
     Route: 041
     Dates: start: 20210916, end: 20210916
  26. AMOXICILLIN [Concomitant]
     Active Substance: AMOXICILLIN
     Indication: Infection
     Route: 041
     Dates: start: 20210917, end: 20210923
  27. OXYCODONE [Concomitant]
     Active Substance: OXYCODONE
     Indication: Pain
     Route: 048
     Dates: start: 20210920, end: 20210920
  28. LORAZEPAM [Concomitant]
     Active Substance: LORAZEPAM
     Indication: Anxiety
     Route: 048
     Dates: start: 20210918, end: 20210920
  29. BISACODYL [Concomitant]
     Active Substance: BISACODYL
     Indication: Constipation
     Route: 048
     Dates: start: 20210918, end: 20210918

REACTIONS (2)
  - Pulmonary embolism [Fatal]
  - Pulmonary embolism [Fatal]

NARRATIVE: CASE EVENT DATE: 20210924
